FAERS Safety Report 15231372 (Version 1)
Quarter: 2018Q3

REPORT INFORMATION
  Report Type: Spontaneous
  Country: DE (occurrence: DE)
  Receive Date: 20180802
  Receipt Date: 20180802
  Transmission Date: 20181010
  Serious: Yes (Life-Threatening)
  Sender: FDA-Public Use
  Company Number: PHHY2018DE059350

PATIENT
  Age: 59 Year
  Sex: Female

DRUGS (11)
  1. IDARUBICIN [Suspect]
     Active Substance: IDARUBICIN
     Dosage: 21.6 MG, QD
     Route: 042
  2. CYTARABINE. [Suspect]
     Active Substance: CYTARABINE
     Dosage: 190 MG, QD
     Route: 042
  3. BUSILVEX [Suspect]
     Active Substance: BUSULFAN
     Indication: BONE MARROW CONDITIONING REGIMEN
     Dosage: 232 MG, QD
     Route: 042
  4. FLUDARABINE [Suspect]
     Active Substance: FLUDARABINE PHOSPHATE
     Indication: BONE MARROW CONDITIONING REGIMEN
     Dosage: 55 MG, QD
     Route: 042
  5. IDARUBICIN [Suspect]
     Active Substance: IDARUBICIN
     Dosage: 21.6 MG, QD
     Route: 042
  6. IDARUBICIN [Suspect]
     Active Substance: IDARUBICIN
     Dosage: 21.6 MG, QD
     Route: 042
  7. ATG [Suspect]
     Active Substance: LAPINE T-LYMPHOCYTE IMMUNE GLOBULIN
     Indication: BONE MARROW CONDITIONING REGIMEN
     Dosage: 720 MG, QD
     Route: 042
  8. IDARUBICIN [Suspect]
     Active Substance: IDARUBICIN
     Indication: ACUTE MYELOID LEUKAEMIA
     Dosage: 22.8 MG, QD
     Route: 042
  9. IDARUBICIN [Suspect]
     Active Substance: IDARUBICIN
     Dosage: 22.8 MG, QD
     Route: 042
  10. IDARUBICIN [Suspect]
     Active Substance: IDARUBICIN
     Dosage: 22.8 MG, QD
     Route: 042
  11. CYTARABINE. [Suspect]
     Active Substance: CYTARABINE
     Indication: ACUTE MYELOID LEUKAEMIA
     Dosage: 180 MG, QD
     Route: 042

REACTIONS (1)
  - Dedifferentiated liposarcoma [Recovered/Resolved]

NARRATIVE: CASE EVENT DATE: 20170727
